FAERS Safety Report 4754462-0 (Version None)
Quarter: 2005Q3

REPORT INFORMATION
  Report Type: 
  Country: None (occurrence: None)
  Receive Date: 20050826
  Receipt Date: 20020326
  Transmission Date: 20060218
  Serious: Yes (Hospitalization, Other)
  Sender: FDA-Public Use
  Company Number: USA-2002-0000558

PATIENT
  Age: 52 Year
  Sex: Female
  Weight: 63.5 kg

DRUGS (34)
  1. OXYCONTIN [Suspect]
     Indication: PAIN
     Dosage: 10 MG, Q12H, ORAL
     Route: 048
     Dates: start: 19990401, end: 20030101
  2. OXYCONTIN [Suspect]
     Indication: PAIN
     Dosage: 20 MG, Q12H, ORAL
     Route: 048
     Dates: start: 19990412, end: 20030101
  3. OXYCONTIN [Suspect]
     Indication: PAIN
     Dosage: 40 MG, Q12H, ORAL
     Route: 048
     Dates: start: 19990501, end: 20030101
  4. OXYCODONE HCL [Suspect]
     Indication: PAIN
     Dosage: 10 MG, QID, ORAL
     Route: 048
     Dates: start: 19990401, end: 20000101
  5. MS CONTIN [Suspect]
     Indication: PAIN
     Dosage: 15 MG, ORAL
     Route: 048
     Dates: start: 19990326, end: 19990401
  6. MORPHINE SULFATE [Suspect]
     Indication: CANCER PAIN
  7. MORPHINE SULFATE [Concomitant]
  8. NORCO [Concomitant]
  9. NEURONTIN [Concomitant]
  10. MOTRIN [Concomitant]
  11. PAXIL [Concomitant]
  12. XANAX [Concomitant]
  13. LASIX [Concomitant]
  14. AMBIEN [Concomitant]
  15. VICODIN [Concomitant]
  16. VISTARIL [Concomitant]
  17. MEPERIDINE HYDROCHLORIDE [Concomitant]
  18. TRIMOX [Concomitant]
  19. VIOXX [Concomitant]
  20. GUAIFENESIN [Concomitant]
  21. METHYLPREDNISOLONE [Concomitant]
  22. ZOVIRAX COLD SORE CREAM [Concomitant]
  23. AMOXIL SODIUM [Concomitant]
  24. ALBUTEROL [Concomitant]
  25. CELEBREX [Concomitant]
  26. ZANTAC [Concomitant]
  27. RENOVA [Concomitant]
  28. PROMETHAZINE [Concomitant]
  29. COLACE [Concomitant]
  30. LORTAB [Concomitant]
  31. MULTI-VITAMINS [Concomitant]
  32. LEVAQUIN [Concomitant]
  33. FEMARA [Concomitant]
  34. HYDROXYZINE [Concomitant]

REACTIONS (18)
  - AMNESIA [None]
  - ANAEMIA [None]
  - ASTHMA [None]
  - CONFUSIONAL STATE [None]
  - DRUG ABUSER [None]
  - DRUG DEPENDENCE [None]
  - DRUG INEFFECTIVE [None]
  - EMOTIONAL DISTRESS [None]
  - GAIT DISTURBANCE [None]
  - HEADACHE [None]
  - HERPES SIMPLEX [None]
  - INADEQUATE ANALGESIA [None]
  - INSOMNIA [None]
  - PAIN [None]
  - PERSONALITY DISORDER [None]
  - RENAL FAILURE [None]
  - SUICIDAL IDEATION [None]
  - WEIGHT INCREASED [None]
